FAERS Safety Report 25863232 (Version 2)
Quarter: 2025Q4

REPORT INFORMATION
  Report Type: Spontaneous
  Country: EU (occurrence: EU)
  Receive Date: 20250930
  Receipt Date: 20251016
  Transmission Date: 20260118
  Serious: Yes (Hospitalization)
  Sender: ABBVIE
  Company Number: EU-ABBVIE-6481161

PATIENT
  Age: 78 Year
  Sex: Male

DRUGS (3)
  1. DEPAKOTE [Suspect]
     Active Substance: DIVALPROEX SODIUM
     Indication: Bipolar disorder
     Dosage: FORM STRENGTH: 500MG
     Route: 048
  2. DEPAKOTE [Suspect]
     Active Substance: DIVALPROEX SODIUM
     Indication: Bipolar disorder
     Dosage: FORM STRENGTH: 500MG
     Route: 048
  3. TERALITHE [Suspect]
     Active Substance: LITHIUM CARBONATE
     Indication: Mania
     Dosage: 400 MG X 2 IN THE EVENING
     Route: 065

REACTIONS (6)
  - Inappropriate schedule of product discontinuation [Unknown]
  - Mania [Unknown]
  - Gait disturbance [Unknown]
  - Fall [Unknown]
  - Dysarthria [Unknown]
  - Diarrhoea [Unknown]
